FAERS Safety Report 18152883 (Version 1)
Quarter: 2020Q3

REPORT INFORMATION
  Report Type: Spontaneous
  Country: DE (occurrence: DE)
  Receive Date: 20200814
  Receipt Date: 20200814
  Transmission Date: 20201103
  Serious: Yes (Other)
  Sender: FDA-Public Use
  Company Number: DE-BAUSCH-BL-2020-022462

PATIENT
  Sex: Female

DRUGS (1)
  1. OFLOXACIN?OPHTAL SINE 3 MG/ML AUGENTROPFEN [Suspect]
     Active Substance: OFLOXACIN
     Indication: EYE DISORDER
     Route: 065
     Dates: start: 20200804

REACTIONS (2)
  - Erythema [Unknown]
  - Stevens-Johnson syndrome [Unknown]
